FAERS Safety Report 7350233-X (Version None)
Quarter: 2011Q1

REPORT INFORMATION
  Report Type: 
  Country: None (occurrence: None)
  Receive Date: 20110314
  Receipt Date: 20110303
  Transmission Date: 20110831
  Serious: Yes (Hospitalization, Other)
  Sender: FDA-Public Use
  Company Number: US-ASTRAZENECA-2010SE53637

PATIENT
  Sex: Male

DRUGS (2)
  1. NEXIUM [Suspect]
     Route: 048
  2. SEROQUEL XR [Suspect]
     Route: 048

REACTIONS (9)
  - ABDOMINAL PAIN UPPER [None]
  - EYE DISORDER [None]
  - FEELING ABNORMAL [None]
  - INTESTINAL RESECTION [None]
  - MALAISE [None]
  - DRUG DOSE OMISSION [None]
  - DISABILITY [None]
  - GAIT DISTURBANCE [None]
  - GASTRIC OPERATION [None]
